FAERS Safety Report 7265494-5 (Version None)
Quarter: 2011Q1

REPORT INFORMATION
  Report Type: 
  Country: None (occurrence: None)
  Receive Date: 20110131
  Receipt Date: 20110126
  Transmission Date: 20110831
  Serious: Yes (Hospitalization)
  Sender: FDA-Public Use
  Company Number: ZA-JNJFOC-20110107457

PATIENT
  Sex: Female
  Weight: 86.6 kg

DRUGS (3)
  1. PALIPERIDONE PALMITATE [Suspect]
     Indication: SCHIZOPHRENIA
     Route: 030
  2. PALIPERIDONE PALMITATE [Suspect]
     Route: 030
  3. PALIPERIDONE PALMITATE [Suspect]
     Route: 030

REACTIONS (2)
  - MAJOR DEPRESSION [None]
  - PSYCHOTIC DISORDER [None]
